FAERS Safety Report 4465150-2 (Version None)
Quarter: 2004Q3

REPORT INFORMATION
  Report Type: 
  Country: None (occurrence: None)
  Receive Date: 20040929
  Receipt Date: 20040909
  Transmission Date: 20050211
  Serious: Yes (Hospitalization, Other)
  Sender: FDA-Public Use
  Company Number: USA040977768

PATIENT
  Age: 61 Year
  Sex: Female
  Weight: 118 kg

DRUGS (1)
  1. HUMULIN 70/30 [Suspect]
     Dosage: 16 U DAY
     Dates: start: 19960101

REACTIONS (10)
  - BURNING SENSATION [None]
  - DIABETES MELLITUS INADEQUATE CONTROL [None]
  - DIFFICULTY IN WALKING [None]
  - FALL [None]
  - IMPAIRED HEALING [None]
  - INJECTION SITE BURNING [None]
  - LOWER LIMB FRACTURE [None]
  - MEDICAL DEVICE COMPLICATION [None]
  - PHARMACEUTICAL PRODUCT COMPLAINT [None]
  - WEIGHT INCREASED [None]
